FAERS Safety Report 6379522-2 (Version None)
Quarter: 2009Q3

REPORT INFORMATION
  Report Type: 
  Country: None (occurrence: None)
  Receive Date: 20090928
  Receipt Date: 20090925
  Transmission Date: 20100115
  Serious: Yes (Hospitalization)
  Sender: FDA-Public Use
  Company Number: JP-EISAI INC.-E2020-05184-SPO-JP

PATIENT
  Age: 81 Year
  Sex: Female
  Weight: 36 kg

DRUGS (8)
  1. ARICEPT [Suspect]
     Indication: DEMENTIA ALZHEIMER'S TYPE
     Route: 048
     Dates: start: 20090508, end: 20090602
  2. ARICEPT [Suspect]
     Route: 048
     Dates: start: 20090603, end: 20090819
  3. ALINAMIN [Concomitant]
     Dates: end: 20090819
  4. SYMMETREL [Concomitant]
     Dates: end: 20090819
  5. RIZE [Concomitant]
     Dates: end: 20090819
  6. ROHYPNOL [Concomitant]
     Dates: end: 20090819
  7. MEDIPEACE [Concomitant]
     Dates: end: 20090819
  8. POLLAKISU [Concomitant]
     Dates: end: 20090819

REACTIONS (1)
  - CONVULSION [None]
